APPROVED DRUG PRODUCT: PROVENTIL
Active Ingredient: ALBUTEROL SULFATE
Strength: EQ 4MG BASE
Dosage Form/Route: TABLET, EXTENDED RELEASE;ORAL
Application: N019383 | Product #001
Applicant: SCHERING CORP SUB SCHERING PLOUGH CORP
Approved: Jul 13, 1987 | RLD: No | RS: No | Type: DISCN